FAERS Safety Report 18730044 (Version 1)
Quarter: 2021Q1

REPORT INFORMATION
  Report Type: Spontaneous
  Country: ES (occurrence: ES)
  Receive Date: 20210112
  Receipt Date: 20210112
  Transmission Date: 20210419
  Serious: Yes (Hospitalization)
  Sender: FDA-Public Use
  Company Number: ES-TEVA-2021-ES-1866928

PATIENT
  Age: 65 Year
  Sex: Female

DRUGS (1)
  1. METILFENIDATO (3773A) [Suspect]
     Active Substance: METHYLPHENIDATE
     Route: 048
     Dates: start: 2020

REACTIONS (2)
  - Tremor [Recovering/Resolving]
  - Drug abuse [Recovering/Resolving]

NARRATIVE: CASE EVENT DATE: 20200924
